FAERS Safety Report 4706047-X (Version None)
Quarter: 2005Q2

REPORT INFORMATION
  Report Type: 
  Country: None (occurrence: None)
  Receive Date: 20050204
  Receipt Date: 20050204
  Transmission Date: 20051028
  Serious: Yes (Other)
  Sender: FDA-Public Use
  Company Number: None

PATIENT
  Sex: Female

DRUGS (1)
  1. NORTRIPTYLINE HCL [Suspect]
     Indication: BIPOLAR DISORDER
     Dosage: 50MGM PO
     Route: 048
     Dates: start: 20040210, end: 20040517

REACTIONS (3)
  - ANXIETY [None]
  - DEPRESSION [None]
  - THERAPEUTIC RESPONSE UNEXPECTED WITH DRUG SUBSTITUTION [None]
